FAERS Safety Report 25986564 (Version 1)
Quarter: 2025Q4

REPORT INFORMATION
  Report Type: Spontaneous
  Country: CN (occurrence: CN)
  Receive Date: 20251031
  Receipt Date: 20251031
  Transmission Date: 20260118
  Serious: Yes (Hospitalization, Other)
  Sender: NOVARTIS
  Company Number: CN-002147023-NVSC2025CN165841

PATIENT
  Age: 34 Year
  Sex: Male
  Weight: 70 kg

DRUGS (6)
  1. OXCARBAZEPINE [Suspect]
     Active Substance: OXCARBAZEPINE
     Indication: Partial seizures
     Dosage: 0.45 G, BID (MORNING AND EVENING)
     Route: 048
     Dates: start: 20250219, end: 20250925
  2. OXCARBAZEPINE [Suspect]
     Active Substance: OXCARBAZEPINE
     Dosage: 0.3 G, BID
     Route: 048
  3. VALPROATE SODIUM [Suspect]
     Active Substance: VALPROATE SODIUM
     Indication: Partial seizures
     Dosage: 0.5 G, BID (MORNING AND EVENING)
     Route: 048
     Dates: start: 20250219, end: 20250925
  4. ZONISAMIDE [Suspect]
     Active Substance: ZONISAMIDE
     Indication: Partial seizures
     Dosage: 150 MG, BID (MORNING AND EVENING)
     Route: 048
     Dates: start: 20250219, end: 20250925
  5. ZONISAMIDE [Suspect]
     Active Substance: ZONISAMIDE
     Dosage: 100 MG, BID
     Route: 048
  6. VITAMIN B6 [Concomitant]
     Active Substance: PYRIDOXINE HYDROCHLORIDE
     Indication: Abdominal discomfort
     Dosage: 20 MG, BID
     Route: 048
     Dates: start: 20250219

REACTIONS (3)
  - Asthenia [Recovering/Resolving]
  - Dizziness [Recovering/Resolving]
  - Epilepsy [Unknown]

NARRATIVE: CASE EVENT DATE: 20250923
